FAERS Safety Report 7645578-X (Version None)
Quarter: 2011Q3

REPORT INFORMATION
  Report Type: 
  Country: None (occurrence: None)
  Receive Date: 20110729
  Receipt Date: 20110718
  Transmission Date: 20111222
  Serious: No
  Sender: FDA-Public Use
  Company Number: US-PFIZER INC-2011092990

PATIENT
  Sex: Male

DRUGS (9)
  1. MARCAINE [Suspect]
     Dosage: UNK
     Dates: start: 20110316, end: 20110316
  2. LOPRESSOR [Concomitant]
     Indication: HYPERTENSION
     Dosage: 50 MG, UNK
     Route: 048
  3. CETIRIZINE [Concomitant]
     Indication: HYPERSENSITIVITY
     Dosage: 10 MG, UNK
     Route: 048
  4. LIDOCAINE HYDROCHLORIDE [Suspect]
     Dosage: UNK
     Dates: start: 20110316, end: 20110316
  5. METFORMIN [Concomitant]
     Indication: DIABETES MELLITUS
     Dosage: 500 MG, UNK
     Route: 048
  6. COLLAGENASE CLOSTRIDIUM HISTOLYTICUM [Suspect]
     Indication: DUPUYTREN'S CONTRACTURE
     Dosage: 0.58 MG, 1X/DAY
     Route: 026
     Dates: start: 20110315, end: 20110315
  7. SODIUM BICARBONATE [Suspect]
     Dosage: UNK
     Dates: start: 20110316, end: 20110316
  8. ACETYLSALICYLIC ACID [Concomitant]
     Dosage: 81 MG, UNK
     Route: 048
  9. PROBENECID [Concomitant]
     Dosage: 500 MG, UNK
     Route: 048

REACTIONS (6)
  - ECCHYMOSIS [None]
  - BLISTER [None]
  - LACERATION [None]
  - HAEMORRHAGE SUBCUTANEOUS [None]
  - PAIN [None]
  - OEDEMA PERIPHERAL [None]
